FAERS Safety Report 8889148 (Version 4)
Quarter: 2012Q4

REPORT INFORMATION
  Report Type: 
  Country: FR (occurrence: FR)
  Receive Date: 20121106
  Receipt Date: 20121214
  Transmission Date: 20130627
  Serious: Yes (Life-Threatening, Hospitalization)
  Sender: FDA-Public Use
  Company Number: FR-NAPPMUNDI-GBR-2012-0012019

PATIENT
  Age: 85 Year
  Sex: Female
  Weight: 68 kg

DRUGS (8)
  1. MOSCONTIN [Suspect]
     Indication: BACK PAIN
     Dosage: 200 mg bid, (200mg AM, 200 mg PM)
     Route: 048
     Dates: start: 20121018
  2. INSULIN [Concomitant]
     Indication: PRODUCT USED FOR UNKNOWN INDICATION
     Dosage: 1 UNK, UNK
     Route: 042
  3. KARDEGIC [Concomitant]
     Indication: BLOOD PRESSURE
     Dosage: 1 Sachet, daily
     Route: 048
  4. LOXEN [Concomitant]
     Indication: PRODUCT USED FOR UNKNOWN INDICATION
     Dosage: 1 tablet, bid
     Route: 048
  5. EUPRESSYL                          /00631801/ [Concomitant]
     Indication: PRODUCT USED FOR UNKNOWN INDICATION
     Dosage: 1 DF, daily
     Route: 065
  6. LEVOTHYROX [Concomitant]
     Indication: PRODUCT USED FOR UNKNOWN INDICATION
     Dosage: 1 DF, daily
     Route: 048
  7. LERCAPRESS [Concomitant]
     Indication: PRODUCT USED FOR UNKNOWN INDICATION
     Dosage: 1 DF, daily
     Route: 048
  8. TEMERIT [Concomitant]
     Indication: PRODUCT USED FOR UNKNOWN INDICATION
     Dosage: 1 DF, daily
     Route: 048

REACTIONS (13)
  - Overdose [Unknown]
  - Drug dispensing error [Unknown]
  - Drug prescribing error [Unknown]
  - Diarrhoea [Not Recovered/Not Resolved]
  - Amnesia [Unknown]
  - Dehydration [Not Recovered/Not Resolved]
  - Confusional state [Recovered/Resolved]
  - Hypertension [Unknown]
  - Hyperhidrosis [Recovered/Resolved]
  - Abdominal pain [Unknown]
  - Fatigue [Unknown]
  - Yawning [Unknown]
  - Rhinorrhoea [Unknown]
